FAERS Safety Report 16531864 (Version 1)
Quarter: 2019Q3

REPORT INFORMATION
  Report Type: Spontaneous
  Country: US (occurrence: US)
  Receive Date: 20190704
  Receipt Date: 20190704
  Transmission Date: 20191004
  Serious: Yes (Other)
  Sender: FDA-Public Use
  Company Number: US-ACCORD-136338

PATIENT
  Age: 47 Year
  Sex: Female
  Weight: 119.3 kg

DRUGS (15)
  1. EPLERENONE. [Suspect]
     Active Substance: EPLERENONE
     Indication: PRODUCT USED FOR UNKNOWN INDICATION
  2. TYLENOL WITH CODEINE [Concomitant]
     Active Substance: ACETAMINOPHEN\CODEINE PHOSPHATE
  3. FINASTERIDE. [Concomitant]
     Active Substance: FINASTERIDE
  4. DOXYCYCLINE. [Concomitant]
     Active Substance: DOXYCYCLINE
  5. LASIX [Concomitant]
     Active Substance: FUROSEMIDE
  6. METOPROLOL. [Concomitant]
     Active Substance: METOPROLOL
  7. CITALOPRAM [Concomitant]
     Active Substance: CITALOPRAM HYDROBROMIDE
  8. LOSARTAN. [Concomitant]
     Active Substance: LOSARTAN
  9. OMEPRAZOLE. [Concomitant]
     Active Substance: OMEPRAZOLE
  10. LINZESS [Concomitant]
     Active Substance: LINACLOTIDE
  11. ALBUTEROL. [Concomitant]
     Active Substance: ALBUTEROL
  12. TOPAMAX [Concomitant]
     Active Substance: TOPIRAMATE
  13. KORLYM [Suspect]
     Active Substance: MIFEPRISTONE
     Indication: CUSHING^S SYNDROME
     Dosage: ALSO RECEIVED 300 MG FROM 14-SEP-2017 TO 01-NOV-2017
     Dates: start: 20171102
  14. SYNTHROID [Concomitant]
     Active Substance: LEVOTHYROXINE SODIUM
  15. VICTOZA [Concomitant]
     Active Substance: LIRAGLUTIDE

REACTIONS (4)
  - Peripheral swelling [Not Recovered/Not Resolved]
  - Nephrolithiasis [Not Recovered/Not Resolved]
  - Hypokalaemia [Not Recovered/Not Resolved]
  - Condition aggravated [Not Recovered/Not Resolved]

NARRATIVE: CASE EVENT DATE: 201712
